FAERS Safety Report 14519606 (Version 1)
Quarter: 2018Q1

REPORT INFORMATION
  Report Type: Spontaneous
  Country: US (occurrence: US)
  Receive Date: 20180210
  Receipt Date: 20180210
  Transmission Date: 20180509
  Serious: Yes (Other)
  Sender: FDA-Public Use
  Company Number: None

PATIENT
  Age: 27 Year
  Sex: Female
  Weight: 99 kg

DRUGS (1)
  1. FLUCONAZOLE 150MG TAB [Suspect]
     Active Substance: FLUCONAZOLE
     Indication: FUNGAL INFECTION
     Dosage: ?          QUANTITY:1 TABLET(S);OTHER FREQUENCY:TAKE 1 TABLET NOW;?
     Route: 048
     Dates: start: 20180209, end: 20180209

REACTIONS (5)
  - Throat irritation [None]
  - Rash pruritic [None]
  - Rash [None]
  - Urticaria [None]
  - Oropharyngeal pain [None]

NARRATIVE: CASE EVENT DATE: 20180209
